FAERS Safety Report 12993141 (Version 1)
Quarter: 2016Q4

REPORT INFORMATION
  Report Type: Spontaneous
  Country: GB (occurrence: GB)
  Receive Date: 20161202
  Receipt Date: 20161202
  Transmission Date: 20170207
  Serious: Yes (Other)
  Sender: FDA-Public Use
  Company Number: GB-TEVA-715748ACC

PATIENT
  Age: 55 Year
  Sex: Female
  Weight: 73.93 kg

DRUGS (4)
  1. ADCAL-D3 [Concomitant]
     Active Substance: CALCIUM CARBONATE\CHOLECALCIFEROL
  2. ALENDRONIC ACID [Suspect]
     Active Substance: ALENDRONIC ACID
     Indication: OSTEOPENIA
     Route: 048
     Dates: start: 2012, end: 2015
  3. BRISTOL LABS LANSOPRAZOLE GASTRO-RESISTANT [Concomitant]
  4. NASONEX [Concomitant]
     Active Substance: MOMETASONE FUROATE

REACTIONS (2)
  - Tooth injury [Unknown]
  - Teeth brittle [Unknown]
